FAERS Safety Report 22014282 (Version 3)
Quarter: 2023Q2

REPORT INFORMATION
  Report Type: Report from Study
  Country: JP (occurrence: JP)
  Receive Date: 20230221
  Receipt Date: 20230516
  Transmission Date: 20230721
  Serious: Yes (Death, Hospitalization)
  Sender: FDA-Public Use
  Company Number: JP-002147023-NVSJ2022JP100505

PATIENT
  Age: 65 Year
  Sex: Male
  Weight: 70.4 kg

DRUGS (1)
  1. SCEMBLIX [Suspect]
     Active Substance: ASCIMINIB HYDROCHLORIDE
     Indication: Chronic myeloid leukaemia
     Dosage: 40 MG
     Route: 048
     Dates: start: 20221023, end: 20221029

REACTIONS (5)
  - Abdominal distension [Fatal]
  - Decreased appetite [Fatal]
  - Nausea [Fatal]
  - Vomiting [Fatal]
  - Feeding disorder [Unknown]

NARRATIVE: CASE EVENT DATE: 20221028
